FAERS Safety Report 23053967 (Version 1)
Quarter: 2023Q4

REPORT INFORMATION
  Report Type: Spontaneous
  Country: AE (occurrence: AE)
  Receive Date: 20231011
  Receipt Date: 20231011
  Transmission Date: 20240109
  Serious: Yes (Life-Threatening, Hospitalization, Other)
  Sender: FDA-Public Use
  Company Number: AE-MLMSERVICE-20230927-4564285-1

PATIENT
  Age: 71 Year
  Sex: Male

DRUGS (19)
  1. CARBIDOPA\LEVODOPA [Suspect]
     Active Substance: CARBIDOPA\LEVODOPA
     Indication: Parkinson^s disease
     Dosage: PROGRESSIVELY INCREASED TO 25/100 FOUR TIMES DAILY
  2. CLONAZEPAM [Suspect]
     Active Substance: CLONAZEPAM
     Indication: Partial seizures
     Dosage: INCREASED
  3. LACOSAMIDE [Suspect]
     Active Substance: LACOSAMIDE
     Indication: Seizure
     Dosage: INCREASED
  4. LEVETIRACETAM [Suspect]
     Active Substance: LEVETIRACETAM
     Indication: Seizure
  5. VALPROATE [Suspect]
     Active Substance: VALPROIC ACID
     Indication: Status epilepticus
  6. PHENYTOIN [Suspect]
     Active Substance: PHENYTOIN
     Indication: Seizure
     Dosage: MAINTENANCE DOSE
  7. PERAMPANEL [Suspect]
     Active Substance: PERAMPANEL
     Indication: Status epilepticus
  8. CEFTOLOZANE [Concomitant]
     Active Substance: CEFTOLOZANE
     Indication: Antibiotic therapy
  9. FENTANYL [Concomitant]
     Active Substance: FENTANYL
  10. AVIBACTAM [Concomitant]
     Active Substance: AVIBACTAM
     Indication: Antibiotic therapy
  11. PROPOFOL [Concomitant]
     Active Substance: PROPOFOL
  12. FLUCONAZOLE [Concomitant]
     Active Substance: FLUCONAZOLE
     Indication: Antibiotic therapy
  13. ERTAPENEM [Concomitant]
     Active Substance: ERTAPENEM
     Indication: Antibiotic therapy
  14. LEVETIRACETAM [Suspect]
     Active Substance: LEVETIRACETAM
     Indication: Seizure
     Dosage: INCREASED
  15. PHENYTOIN [Suspect]
     Active Substance: PHENYTOIN
     Indication: Seizure
     Dosage: LOADING DOSE
  16. LEVETIRACETAM [Suspect]
     Active Substance: LEVETIRACETAM
     Indication: Seizure
  17. CLONAZEPAM [Suspect]
     Active Substance: CLONAZEPAM
     Indication: Partial seizures
  18. LACOSAMIDE [Suspect]
     Active Substance: LACOSAMIDE
     Indication: Seizure
     Dosage: LOADED DOSE
  19. LACOSAMIDE [Suspect]
     Active Substance: LACOSAMIDE
     Indication: Seizure
     Dosage: MAINTENANCE DOSE

REACTIONS (2)
  - Vitamin B6 deficiency [Recovered/Resolved]
  - Status epilepticus [Recovered/Resolved]
